FAERS Safety Report 11297448 (Version 1)
Quarter: 2015Q3

REPORT INFORMATION
  Report Type: Spontaneous
  Country: US (occurrence: US)
  Receive Date: 20150722
  Receipt Date: 20150722
  Transmission Date: 20151125
  Serious: No
  Sender: FDA-Public Use
  Company Number: US-ELI_LILLY_AND_COMPANY-US200805001895

PATIENT
  Age: 50 Year
  Sex: Female
  Weight: 73.47 kg

DRUGS (8)
  1. HUMATROPE [Suspect]
     Active Substance: SOMATROPIN
     Dosage: 0.2 MG, UNKNOWN
     Dates: start: 20080201
  2. FISH OIL [Concomitant]
     Active Substance: FISH OIL
     Dosage: UNK, UNKNOWN
  3. CHONDROITIN [Concomitant]
     Active Substance: CHONDROITIN
     Dosage: UNK, UNKNOWN
  4. DHEA [Concomitant]
     Active Substance: PRASTERONE
     Dosage: UNK, UNKNOWN
  5. VITAMIN D [Concomitant]
     Active Substance: CHOLECALCIFEROL
     Dosage: UNK, UNKNOWN
  6. HUMATROPE [Suspect]
     Active Substance: SOMATROPIN
     Indication: HYPOPITUITARISM
     Dosage: 0.2 MG, UNKNOWN
     Dates: start: 20080201
  7. GLUCOSAMINE [Concomitant]
     Active Substance: GLUCOSAMINE
     Dosage: UNK, UNKNOWN
  8. NIACIN. [Concomitant]
     Active Substance: NIACIN
     Dosage: UNK, UNKNOWN

REACTIONS (8)
  - Mobility decreased [Recovered/Resolved]
  - Contusion [Recovering/Resolving]
  - Drug ineffective [Not Recovered/Not Resolved]
  - Asthenia [Not Recovered/Not Resolved]
  - Weight increased [Recovering/Resolving]
  - Muscle disorder [Not Recovered/Not Resolved]
  - Peripheral swelling [Recovered/Resolved]
  - Blood cholesterol increased [Not Recovered/Not Resolved]

NARRATIVE: CASE EVENT DATE: 20080201
